FAERS Safety Report 12893206 (Version 1)
Quarter: 2016Q4

REPORT INFORMATION
  Report Type: Spontaneous
  Country: GB (occurrence: GB)
  Receive Date: 20161028
  Receipt Date: 20161028
  Transmission Date: 20170207
  Serious: Yes (Hospitalization, Other)
  Sender: FDA-Public Use
  Company Number: GB-009507513-1610GBR014589

PATIENT
  Age: 69 Year
  Sex: Male

DRUGS (27)
  1. SULFAMETHOXAZOLE (+) TRIMETHOPRIM [Concomitant]
     Active Substance: SULFAMETHOXAZOLE\TRIMETHOPRIM
     Indication: ANTI-INFECTIVE THERAPY
     Dosage: 960 MG, 2 IN 1 WK
     Route: 048
     Dates: start: 20151020
  2. DOCUSATE SODIUM. [Concomitant]
     Active Substance: DOCUSATE SODIUM
     Indication: CONSTIPATION
     Dosage: 10 MG, UNK
     Dates: start: 20150812
  3. FENTANYL. [Concomitant]
     Active Substance: FENTANYL
     Dosage: 25 MICROGRAM, 2 IN 1 DAY
     Route: 061
     Dates: start: 20160405, end: 20160407
  4. ACIDEX (CALCIUM CARBONATE (+) SODIUM ALGINATE (+) SODIUM BICARBONATE) [Concomitant]
     Active Substance: CALCIUM CARBONATE\SODIUM ALGINATE\SODIUM BICARBONATE
     Indication: DYSPEPSIA
     Dosage: 5-10ML (5ML 3 IN 1 D)UNK
     Route: 048
     Dates: start: 20160411
  5. FENTANYL. [Concomitant]
     Active Substance: FENTANYL
     Indication: BACK PAIN
     Dosage: 15 MG, 50MCG 2 IN 1 DAY
     Route: 061
     Dates: start: 20160411
  6. POLYETHYLENE GLYCOL [Concomitant]
     Active Substance: POLYETHYLENE GLYCOLS
     Indication: CONSTIPATION
     Dosage: 960 MG, UNK
     Route: 048
     Dates: start: 20160401
  7. METOCLOPRAMIDE. [Concomitant]
     Active Substance: METOCLOPRAMIDE
     Indication: NAUSEA
     Dosage: 25 G, UNK
  8. BISOPROLOL FUMARATE. [Concomitant]
     Active Substance: BISOPROLOL FUMARATE
     Indication: MITRAL VALVE INCOMPETENCE
     Dosage: 10 MG, QD
     Route: 048
     Dates: start: 2012
  9. MOVICOL [Concomitant]
     Active Substance: POLYETHYLENE GLYCOL 3350\POTASSIUM CHLORIDE\SODIUM BICARBONATE\SODIUM CHLORIDE
     Indication: CONSTIPATION
     Dosage: 750 MG, 2 IN 1 DAY
     Dates: start: 20160401
  10. ZOMORPH [Concomitant]
     Active Substance: MORPHINE SULFATE
     Indication: BACK PAIN
     Dosage: 30 MG, (70 MG 2 IN 1 D)
     Route: 048
     Dates: start: 20160331, end: 20160405
  11. DEXAMETHASONE. [Suspect]
     Active Substance: DEXAMETHASONE
     Indication: PLASMA CELL MYELOMA
     Dosage: 40 MG, QW
     Route: 048
     Dates: start: 20151020
  12. REVLIMID [Suspect]
     Active Substance: LENALIDOMIDE
     Indication: PLASMA CELL MYELOMA
     Dosage: 25 MG, 21 IN 28 D
     Route: 048
  13. REVLIMID [Suspect]
     Active Substance: LENALIDOMIDE
     Dosage: 25 MG,21 IN 28D
     Route: 048
     Dates: start: 20151020
  14. ORAMORPH [Concomitant]
     Active Substance: MORPHINE SULFATE
     Dosage: 360 MG, (5ML)
     Route: 048
     Dates: start: 20150812
  15. FENTANYL. [Concomitant]
     Active Substance: FENTANYL
     Dosage: 37.5 MICROGRAM, 2 IN 1 D
     Route: 061
     Dates: start: 20160408, end: 20160410
  16. ACETAMINOPHEN. [Concomitant]
     Active Substance: ACETAMINOPHEN
     Indication: BACK PAIN
     Dosage: 1 G, 4 IN 1 D
     Dates: start: 20160411
  17. SENNA [Concomitant]
     Active Substance: SENNA LEAF\SENNOSIDES\SENNOSIDES A AND B
     Indication: CONSTIPATION
     Dosage: 7.5 MG, 2 IN 1 D
     Route: 048
     Dates: start: 20160402
  18. DEXAMETHASONE. [Suspect]
     Active Substance: DEXAMETHASONE
     Dosage: 40 MG, UNK
     Route: 048
     Dates: start: 20160308, end: 20160329
  19. CIPROFLOXACIN. [Concomitant]
     Active Substance: CIPROFLOXACIN
     Indication: ANTI-INFECTIVE THERAPY
     Dosage: 800 MG, (250 MG 3 IN 1 D)
     Route: 048
  20. ORAMORPH [Concomitant]
     Active Substance: MORPHINE SULFATE
     Indication: BACK PAIN
     Dosage: 20 ML, (10ML)
     Route: 048
  21. ZOLEDRONIC ACID [Concomitant]
     Active Substance: ZOLEDRONIC ACID
     Indication: OSTEOPOROSIS PROPHYLAXIS
     Dosage: 4.5 MG, (4MG, 1 IN 1D)
     Route: 041
     Dates: start: 20151214
  22. LACTULOSE. [Concomitant]
     Active Substance: LACTULOSE
     Indication: CONSTIPATION
     Dosage: 960 MG, UNK
  23. DIGOXIN. [Concomitant]
     Active Substance: DIGOXIN
     Indication: MITRAL VALVE INCOMPETENCE
     Dosage: 125 MG, 1 IN 1D
     Route: 048
  24. LANSOPRAZOLE. [Concomitant]
     Active Substance: LANSOPRAZOLE
     Indication: ANTIEMETIC SUPPORTIVE CARE
     Dosage: 30 MG, QD
     Dates: start: 20161020
  25. ACYCLOVIR. [Concomitant]
     Active Substance: ACYCLOVIR
     Indication: ANTIVIRAL PROPHYLAXIS
     Dosage: 400 MG, BID
     Route: 048
     Dates: start: 20151020
  26. WARFARIN [Concomitant]
     Active Substance: WARFARIN
     Indication: MITRAL VALVE INCOMPETENCE
     Dosage: 3 G, (4.5 MG)
     Route: 048
     Dates: start: 2015
  27. CALCICHEW [Concomitant]
     Active Substance: CALCIUM CARBONATE
     Indication: HYPOCALCAEMIA
     Dosage: 15 ML, 912.5 GM,2 IN 1D
     Route: 048
     Dates: start: 20160401

REACTIONS (3)
  - Tremor [Recovered/Resolved]
  - Influenza [Recovered/Resolved]
  - Bacteraemia [Recovered/Resolved]

NARRATIVE: CASE EVENT DATE: 20160331
